FAERS Safety Report 18493846 (Version 4)
Quarter: 2024Q2

REPORT INFORMATION
  Report Type: Report from Study
  Country: US (occurrence: US)
  Receive Date: 20201111
  Receipt Date: 20240629
  Transmission Date: 20240716
  Serious: Yes (Other)
  Sender: FDA-Public Use
  Company Number: US-SHIRE-US202031716

PATIENT
  Age: 64 Year
  Sex: Female

DRUGS (3)
  1. HUMAN IMMUNOGLOBULIN G [Suspect]
     Active Substance: HUMAN IMMUNOGLOBULIN G
     Indication: Primary immunodeficiency syndrome
     Dosage: 24 GRAM, Q4WEEKS
     Route: 065
  2. HUMAN IMMUNOGLOBULIN G [Suspect]
     Active Substance: HUMAN IMMUNOGLOBULIN G
     Indication: Immunodeficiency common variable
     Dosage: UNK
     Route: 042
  3. HUMAN IMMUNOGLOBULIN G [Suspect]
     Active Substance: HUMAN IMMUNOGLOBULIN G
     Dosage: 24 GRAM, MONTHLY
     Route: 065

REACTIONS (15)
  - Lower respiratory tract infection [Unknown]
  - Productive cough [Unknown]
  - Infection [Not Recovered/Not Resolved]
  - Chronic obstructive pulmonary disease [Unknown]
  - Illness [Not Recovered/Not Resolved]
  - Splenomegaly [Unknown]
  - Heart rate decreased [Unknown]
  - Sinusitis [Unknown]
  - Asthma [Unknown]
  - Nasal congestion [Unknown]
  - Pyrexia [Unknown]
  - COVID-19 [Recovering/Resolving]
  - Blood cholesterol decreased [Unknown]
  - Intervertebral disc degeneration [Unknown]
  - Accident [Unknown]

NARRATIVE: CASE EVENT DATE: 20220101
